FAERS Safety Report 14092118 (Version 1)
Quarter: 2017Q4

REPORT INFORMATION
  Report Type: Spontaneous
  Country: US (occurrence: US)
  Receive Date: 20171013
  Receipt Date: 20171013
  Transmission Date: 20180321
  Serious: Yes (Other)
  Sender: FDA-Public Use
  Company Number: None

PATIENT
  Age: 35 Year
  Sex: Female
  Weight: 122.4 kg

DRUGS (2)
  1. CLARITIN D 24 [Concomitant]
  2. FLUCONAZOLE TABLET USP 150 MG [Suspect]
     Active Substance: FLUCONAZOLE
     Indication: FUNGAL INFECTION
     Dosage: ?          QUANTITY:1 TABLET(S);?
     Route: 048
     Dates: start: 20171012

REACTIONS (2)
  - Product formulation issue [None]
  - Lip swelling [None]

NARRATIVE: CASE EVENT DATE: 20171012
